FAERS Safety Report 14275717 (Version 3)
Quarter: 2018Q1

REPORT INFORMATION
  Report Type: Spontaneous
  Country: IE (occurrence: IE)
  Receive Date: 20171212
  Receipt Date: 20180103
  Transmission Date: 20180508
  Serious: Yes (Death, Other)
  Sender: FDA-Public Use
  Company Number: IE-MYLANLABS-2017M1077682

PATIENT
  Age: 71 Year
  Sex: Female

DRUGS (1)
  1. CLOZARIL [Suspect]
     Active Substance: CLOZAPINE
     Indication: SCHIZOPHRENIA
     Dosage: UNK
     Route: 048
     Dates: start: 20120323, end: 20171215

REACTIONS (6)
  - Lung neoplasm malignant [Fatal]
  - Haemoglobin decreased [Unknown]
  - Immune system disorder [Unknown]
  - Myelocyte present [Unknown]
  - Terminal state [Fatal]
  - Red blood cell agglutination [Unknown]

NARRATIVE: CASE EVENT DATE: 20171205
